FAERS Safety Report 18583277 (Version 1)
Quarter: 2020Q4

REPORT INFORMATION
  Report Type: Spontaneous
  Country: US (occurrence: US)
  Receive Date: 20201206
  Receipt Date: 20201206
  Transmission Date: 20210114
  Serious: No
  Sender: FDA-Public Use
  Company Number: US-009507513-2011USA007142

PATIENT
  Sex: Female

DRUGS (1)
  1. KEYTRUDA [Suspect]
     Active Substance: PEMBROLIZUMAB
     Indication: GASTRIC CANCER

REACTIONS (2)
  - Rash macular [Unknown]
  - Exfoliative rash [Unknown]
